FAERS Safety Report 8410931-3 (Version None)
Quarter: 2012Q2

REPORT INFORMATION
  Report Type: 
  Country: None (occurrence: None)
  Receive Date: 20120605
  Receipt Date: 20120530
  Transmission Date: 20120825
  Serious: Yes (Hospitalization)
  Sender: FDA-Public Use
  Company Number: US-GENZYME-CLOF-1002167

PATIENT
  Sex: Male

DRUGS (17)
  1. OXYCODONE HYDROCHLORIDE [Concomitant]
     Indication: PAIN
     Dosage: 5 MG, PRN
     Route: 048
     Dates: start: 20120313
  2. DOCUSATE [Concomitant]
     Indication: CONSTIPATION
     Dosage: 200 MG, UNK
     Route: 048
     Dates: start: 20120314
  3. LEVAQUIN [Concomitant]
     Indication: ANTIBIOTIC PROPHYLAXIS
     Dosage: 750 MG, UNK
     Route: 048
     Dates: start: 20120502
  4. CYTARABINE [Suspect]
     Indication: ACUTE MYELOID LEUKAEMIA
     Dosage: UNK
     Route: 065
  5. ACYCLOVIR [Concomitant]
     Indication: ANTIVIRAL TREATMENT
     Dosage: 400 MG, UNK
     Route: 048
     Dates: start: 20120314
  6. HYDROCODONE BITARTRATE AND ACETAMINOPHEN [Concomitant]
     Indication: PAIN
     Dosage: 1 DF, UNK
     Route: 048
     Dates: start: 20120313
  7. CLOLAR [Suspect]
     Indication: ACUTE MYELOID LEUKAEMIA
     Dosage: 46 MG, QD FOR CONSOLIDATION TREATMENT
     Route: 042
     Dates: start: 20120428
  8. CLOLAR [Suspect]
     Dosage: FOR INDUCTION TREATMENT
     Route: 042
     Dates: start: 20120316, end: 20120320
  9. LORAZEPAM [Concomitant]
     Indication: ANXIETY
     Dosage: 0.5 MG, UNK
     Route: 048
     Dates: start: 20120313
  10. VORICONAZOLE [Concomitant]
     Indication: ANTIBIOTIC PROPHYLAXIS
     Dosage: 200 MG, BID
     Route: 048
     Dates: start: 20120402
  11. NEUPOGEN [Suspect]
     Indication: ACUTE MYELOID LEUKAEMIA
     Dosage: UNK
     Route: 065
  12. NICOTINE [Concomitant]
     Indication: EX-TOBACCO USER
     Dosage: 14 MG, PATCH
     Route: 062
     Dates: start: 20120313
  13. OMEPRAZOLE [Concomitant]
     Indication: DYSPEPSIA
     Dosage: 20 MG, UNK
     Route: 048
     Dates: start: 20120320
  14. LORAZEPAM [Concomitant]
     Indication: NAUSEA
  15. ZOLPIDEM [Concomitant]
     Indication: INSOMNIA
     Dosage: 5 MG, UNK
     Route: 048
     Dates: start: 20120314
  16. SENNA-MINT WAF [Concomitant]
     Indication: CONSTIPATION
     Dosage: 2 DF, UNK
     Route: 048
     Dates: start: 20120313
  17. ONDANSETRON [Concomitant]
     Indication: NAUSEA
     Dosage: 8 MG, UNK
     Route: 048
     Dates: start: 20120313

REACTIONS (3)
  - OEDEMA PERIPHERAL [None]
  - ENTEROVESICAL FISTULA [None]
  - FEBRILE NEUTROPENIA [None]
